FAERS Safety Report 7526706-3 (Version None)
Quarter: 2011Q2

REPORT INFORMATION
  Report Type: 
  Country: None (occurrence: None)
  Receive Date: 20110606
  Receipt Date: 20110526
  Transmission Date: 20111010
  Serious: Yes (Other)
  Sender: FDA-Public Use
  Company Number: US-ELI_LILLY_AND_COMPANY-US201101007547

PATIENT
  Sex: Female

DRUGS (9)
  1. HUMALOG [Suspect]
     Dosage: UNK, AS NEEDED
  2. HUMALOG [Suspect]
     Dosage: UNK, PRN
  3. PREDNISONE [Concomitant]
     Dosage: UNK
  4. HUMALOG [Suspect]
     Indication: TYPE 1 DIABETES MELLITUS
     Dosage: UNK, AS NEEDED
  5. HUMALOG [Suspect]
     Dosage: UNK, PRN
  6. LANTUS [Concomitant]
  7. FOSAMAX [Concomitant]
     Dosage: UNK
  8. HUMALOG [Suspect]
     Dosage: 5 U, OTHER
     Dates: start: 20110120, end: 20110120
  9. HUMALOG [Suspect]
     Dosage: 16 U, QD

REACTIONS (8)
  - DRUG INEFFECTIVE [None]
  - BLOOD GLUCOSE DECREASED [None]
  - SPINAL CORD INJURY [None]
  - BLOOD GLUCOSE INCREASED [None]
  - INTENTIONAL DRUG MISUSE [None]
  - HYPOMANIA [None]
  - FUNGAL INFECTION [None]
  - MOBILITY DECREASED [None]
